FAERS Safety Report 12124445 (Version 16)
Quarter: 2017Q2

REPORT INFORMATION
  Report Type: Report from Study
  Country: CN (occurrence: CN)
  Receive Date: 20160229
  Receipt Date: 20170621
  Transmission Date: 20170829
  Serious: Yes (Hospitalization)
  Sender: FDA-Public Use
  Company Number: CN-ROCHE-1717581

PATIENT
  Age: 58 Year
  Sex: Male
  Weight: 62 kg

DRUGS (4)
  1. AVASTIN [Suspect]
     Active Substance: BEVACIZUMAB
     Route: 041
     Dates: end: 20170426
  2. AVASTIN [Suspect]
     Active Substance: BEVACIZUMAB
     Route: 041
  3. DOCETAXEL. [Concomitant]
     Active Substance: DOCETAXEL
     Indication: COLON CANCER
  4. AVASTIN [Suspect]
     Active Substance: BEVACIZUMAB
     Indication: COLON CANCER
     Route: 041
     Dates: start: 20150928, end: 20170405

REACTIONS (18)
  - Alanine aminotransferase increased [Recovered/Resolved]
  - Viral upper respiratory tract infection [Recovering/Resolving]
  - Protein urine present [Not Recovered/Not Resolved]
  - Platelet count decreased [Unknown]
  - Viral upper respiratory tract infection [Unknown]
  - White blood cell count decreased [Recovered/Resolved]
  - White blood cell count decreased [Not Recovered/Not Resolved]
  - Platelet count decreased [Recovered/Resolved]
  - Viral upper respiratory tract infection [Unknown]
  - Pyrexia [Unknown]
  - Protein urine present [Recovered/Resolved]
  - Nausea [Unknown]
  - Protein urine present [Unknown]
  - Cough [Unknown]
  - Constipation [Unknown]
  - Aspartate aminotransferase increased [Recovered/Resolved]
  - White blood cell count decreased [Unknown]
  - Mouth ulceration [Unknown]

NARRATIVE: CASE EVENT DATE: 20160401
